FAERS Safety Report 17483847 (Version 1)
Quarter: 2020Q1

REPORT INFORMATION
  Report Type: Spontaneous
  Country: US (occurrence: US)
  Receive Date: 20200301
  Receipt Date: 20200301
  Transmission Date: 20200409
  Serious: Yes (Life-Threatening, Hospitalization)
  Sender: FDA-Public Use
  Company Number: None

PATIENT
  Age: 48 Year
  Sex: Female
  Weight: 268 kg

DRUGS (1)
  1. ELIQUIS [Suspect]
     Active Substance: APIXABAN
     Indication: DEEP VEIN THROMBOSIS
     Route: 048

REACTIONS (5)
  - Condition aggravated [None]
  - Swelling [None]
  - Treatment failure [None]
  - Deep vein thrombosis [None]
  - Pain [None]

NARRATIVE: CASE EVENT DATE: 20200219
